FAERS Safety Report 26090985 (Version 1)
Quarter: 2025Q4

REPORT INFORMATION
  Report Type: Spontaneous
  Country: US (occurrence: US)
  Receive Date: 20251126
  Receipt Date: 20251126
  Transmission Date: 20260117
  Serious: Yes (Death, Hospitalization)
  Sender: AMGEN
  Company Number: US-AMGEN-USASP2025230571

PATIENT
  Age: 63 Year
  Sex: Female

DRUGS (7)
  1. PREDNISONE [Suspect]
     Active Substance: PREDNISONE
     Indication: Aplastic anaemia
     Dosage: 1 MILLIGRAM/KILOGRAM
     Route: 065
  2. PREDNISONE [Suspect]
     Active Substance: PREDNISONE
     Indication: Pancytopenia
  3. FILGRASTIM [Suspect]
     Active Substance: FILGRASTIM
     Indication: Aplastic anaemia
     Dosage: 480 MICROGRAM
     Route: 065
  4. FILGRASTIM [Suspect]
     Active Substance: FILGRASTIM
     Indication: Pancytopenia
  5. ROMIPLOSTIM [Suspect]
     Active Substance: ROMIPLOSTIM
     Indication: Aplastic anaemia
     Dosage: UNK
     Route: 065
  6. ROMIPLOSTIM [Suspect]
     Active Substance: ROMIPLOSTIM
     Indication: Pancytopenia
  7. CYCLOSPORINE [Concomitant]
     Active Substance: CYCLOSPORINE

REACTIONS (13)
  - Death [Fatal]
  - Hyponatraemia [Unknown]
  - Atrial fibrillation [Unknown]
  - Anastomotic complication [Unknown]
  - Gastrointestinal haemorrhage [Unknown]
  - Pelvic abscess [Unknown]
  - Aplastic anaemia [Unknown]
  - Bacteraemia [Unknown]
  - Retroperitoneal lymphadenopathy [Unknown]
  - Ascites [Unknown]
  - Gastrointestinal wall thickening [Unknown]
  - Female genital tract fistula [Unknown]
  - Oedema mucosal [Unknown]
